FAERS Safety Report 5959101-9 (Version None)
Quarter: 2008Q4

REPORT INFORMATION
  Report Type: 
  Country: None (occurrence: None)
  Receive Date: 20081120
  Receipt Date: 20071129
  Transmission Date: 20090506
  Serious: No
  Sender: FDA-Public Use
  Company Number: A0696552A

PATIENT
  Age: 53 Year
  Sex: Male

DRUGS (2)
  1. WELLBUTRIN SR [Suspect]
     Indication: SLUGGISHNESS
     Dosage: 75MG PER DAY
     Route: 048
     Dates: start: 20071008
  2. SYNTHROID [Concomitant]

REACTIONS (3)
  - AGITATION [None]
  - MEMORY IMPAIRMENT [None]
  - RASH [None]
